FAERS Safety Report 6265057-4 (Version None)
Quarter: 2009Q3

REPORT INFORMATION
  Report Type: 
  Country: None (occurrence: None)
  Receive Date: 20090713
  Receipt Date: 20090630
  Transmission Date: 20100115
  Serious: Yes (Other)
  Sender: FDA-Public Use
  Company Number: US-PFIZER INC-2008030190

PATIENT
  Sex: Male
  Weight: 72.562 kg

DRUGS (2)
  1. DILANTIN [Suspect]
     Indication: HEAD INJURY
     Dosage: 250 MG, 1X/DAY
     Route: 048
     Dates: start: 19930101
  2. DILANTIN [Suspect]
     Indication: CONVULSION

REACTIONS (10)
  - ANTICONVULSANT DRUG LEVEL ABNORMAL [None]
  - BALANCE DISORDER [None]
  - CONFUSIONAL STATE [None]
  - DIZZINESS [None]
  - EYE MOVEMENT DISORDER [None]
  - HEADACHE [None]
  - IMPAIRED DRIVING ABILITY [None]
  - LOSS OF CONSCIOUSNESS [None]
  - NERVOUSNESS [None]
  - SOMNOLENCE [None]
